FAERS Safety Report 17342828 (Version 1)
Quarter: 2020Q1

REPORT INFORMATION
  Report Type: Spontaneous
  Country: US (occurrence: US)
  Receive Date: 20200129
  Receipt Date: 20200129
  Transmission Date: 20200409
  Serious: No
  Sender: FDA-Public Use
  Company Number: US-ALLERGAN-1909711US

PATIENT
  Sex: Female

DRUGS (16)
  1. FIORICET [Concomitant]
     Active Substance: ACETAMINOPHEN\BUTALBITAL\CAFFEINE
  2. TOPAMAX [Concomitant]
     Active Substance: TOPIRAMATE
  3. AMBIEN [Concomitant]
     Active Substance: ZOLPIDEM TARTRATE
  4. RIZATRIPTAN. [Concomitant]
     Active Substance: RIZATRIPTAN
  5. KLONOPIN [Concomitant]
     Active Substance: CLONAZEPAM
  6. SYNTHROID [Concomitant]
     Active Substance: LEVOTHYROXINE SODIUM
  7. WELLBUTRIN [Concomitant]
     Active Substance: BUPROPION HYDROCHLORIDE
  8. GABAPENTIN. [Concomitant]
     Active Substance: GABAPENTIN
  9. IBUPROFEN. [Concomitant]
     Active Substance: IBUPROFEN
  10. BOTOX [Suspect]
     Active Substance: ONABOTULINUMTOXINA
     Indication: MIGRAINE
     Dosage: ACTUAL: CORRUGATOR 5 UNITS, OCCIPITALIS 15 UNITS PER SIDE, CERVICALPARASPINALS 10 UNITS PER SIDE, PR
     Route: 030
     Dates: start: 20190123, end: 20190123
  11. ZANAFLEX [Concomitant]
     Active Substance: TIZANIDINE HYDROCHLORIDE
  12. ASPARTAM [Concomitant]
  13. PAXIL [Concomitant]
     Active Substance: PAROXETINE HYDROCHLORIDE
  14. ARMOUR THYROID [Concomitant]
     Active Substance: THYROID, PORCINE
  15. BC POWDER (ASPIRIN POWDER) [Concomitant]
  16. NAPROXEN. [Concomitant]
     Active Substance: NAPROXEN

REACTIONS (3)
  - Drug ineffective for unapproved indication [Unknown]
  - Off label use [Unknown]
  - Drug ineffective [Unknown]
